FAERS Safety Report 24397026 (Version 2)
Quarter: 2024Q4

REPORT INFORMATION
  Report Type: Report from Study
  Country: CO (occurrence: CO)
  Receive Date: 20241004
  Receipt Date: 20241009
  Transmission Date: 20250114
  Serious: Yes (Other)
  Sender: NOVARTIS
  Company Number: CO-002147023-NVSC2024CO194788

PATIENT
  Sex: Male
  Weight: 82 kg

DRUGS (1)
  1. TASIGNA [Suspect]
     Active Substance: NILOTINIB
     Indication: Chronic myeloid leukaemia
     Dosage: 400 MG, Q12H
     Route: 048
     Dates: start: 201710, end: 202409

REACTIONS (3)
  - Hepatitis B [Recovering/Resolving]
  - Toxicity to various agents [Unknown]
  - Feeling abnormal [Unknown]
